FAERS Safety Report 5011056-X (Version None)
Quarter: 2006Q2

REPORT INFORMATION
  Report Type: 
  Country: None (occurrence: None)
  Receive Date: 20060523
  Receipt Date: 20060510
  Transmission Date: 20061013
  Serious: Yes (Other)
  Sender: FDA-Public Use
  Company Number: GXKR2006BE02631

PATIENT
  Age: 45 Year
  Sex: Female

DRUGS (1)
  1. ASPIRIN [Suspect]
     Dosage: 10 MG, ORAL
     Route: 048

REACTIONS (4)
  - ASTHMA [None]
  - BRONCHOSPASM [None]
  - LEUKOTRIENE INCREASED [None]
  - URINE ANALYSIS ABNORMAL [None]
